FAERS Safety Report 4291685-1 (Version None)
Quarter: 2004Q1

REPORT INFORMATION
  Report Type: 
  Country: None (occurrence: None)
  Receive Date: 20040211
  Receipt Date: 20011106
  Transmission Date: 20041129
  Serious: No
  Sender: FDA-Public Use
  Company Number: US-GLAXOSMITHKLINE-A0166611A

PATIENT
  Age: 46 Year
  Sex: Female
  Weight: 61.4 kg

DRUGS (1)
  1. IMITREX [Suspect]
     Indication: MIGRAINE WITHOUT AURA
     Route: 058
     Dates: start: 19960101

REACTIONS (2)
  - THROAT TIGHTNESS [None]
  - VISION BLURRED [None]
